FAERS Safety Report 10094851 (Version 1)
Quarter: 2014Q2

REPORT INFORMATION
  Report Type: Spontaneous
  Country: US (occurrence: US)
  Receive Date: 20140422
  Receipt Date: 20140422
  Transmission Date: 20141212
  Serious: Yes (Hospitalization)
  Sender: FDA-Public Use
  Company Number: US-SA-2014SA045787

PATIENT
  Age: 75 Year
  Sex: Male

DRUGS (4)
  1. LANTUS SOLOSTAR [Suspect]
     Indication: DIABETES MELLITUS
     Dosage: DOSE- 35 U AM AND 20 U PM
     Route: 065
  2. LANTUS SOLOSTAR [Suspect]
     Indication: DIABETES MELLITUS
     Dosage: 20 UNITS IN THE MORNING AND 10 UNITS AT NIGHT
     Route: 065
  3. NOVOLOG [Concomitant]
     Dosage: 8 UNITS AT BREATFAST, 10 UNITS AT LUNCH AND 12 UNIT AT DINNER
  4. SOLOSTAR [Concomitant]

REACTIONS (2)
  - Brain operation [Unknown]
  - Central nervous system haemorrhage [Unknown]
